FAERS Safety Report 6501930-7 (Version None)
Quarter: 2009Q4

REPORT INFORMATION
  Report Type: 
  Country: None (occurrence: None)
  Receive Date: 20091216
  Receipt Date: 20091202
  Transmission Date: 20100525
  Serious: Yes (Hospitalization, Disabling)
  Sender: FDA-Public Use
  Company Number: US-MYLANLABS-2009S1020728

PATIENT
  Age: 17 Year
  Sex: Male

DRUGS (7)
  1. METHOTREXATE [Suspect]
     Indication: ACUTE LYMPHOCYTIC LEUKAEMIA
     Dosage: RECEIVED INDUCTION THERAPY (4 DOSES) THEN CONSOLIDATION THERAPY
     Route: 037
  2. PREDNISONE [Concomitant]
     Indication: ACUTE LYMPHOCYTIC LEUKAEMIA
     Route: 048
  3. VINCRISTINE [Concomitant]
     Indication: ACUTE LYMPHOCYTIC LEUKAEMIA
  4. DAUNORUBICIN [Concomitant]
     Indication: ACUTE LYMPHOCYTIC LEUKAEMIA
  5. ASPARAGINASE [Concomitant]
     Indication: ACUTE LYMPHOCYTIC LEUKAEMIA
  6. CYTARABINE [Concomitant]
     Indication: ACUTE LYMPHOCYTIC LEUKAEMIA
  7. MERCAPTOPURINE [Concomitant]
     Indication: ACUTE LYMPHOCYTIC LEUKAEMIA
     Route: 048

REACTIONS (6)
  - ATAXIA [None]
  - CHOREOATHETOSIS [None]
  - EXTENSOR PLANTAR RESPONSE [None]
  - FACIAL PALSY [None]
  - HEMIPARESIS [None]
  - NEUROTOXICITY [None]
